FAERS Safety Report 8773798 (Version 3)
Quarter: 2013Q4

REPORT INFORMATION
  Report Type: Spontaneous
  Country: US (occurrence: US)
  Receive Date: 20120907
  Receipt Date: 20131108
  Transmission Date: 20140711
  Serious: Yes (Hospitalization)
  Sender: FDA-Public Use
  Company Number: US-009507513-2012SP001709

PATIENT
  Age: 51 Year
  Sex: Female
  Weight: 74.84 kg

DRUGS (1)
  1. NUVARING [Suspect]
     Indication: PRODUCT USED FOR UNKNOWN INDICATION
     Dosage: UNK
     Route: 067
     Dates: start: 2010, end: 20100626

REACTIONS (12)
  - Deep vein thrombosis [Unknown]
  - Anaemia [Unknown]
  - Gastrointestinal haemorrhage [Unknown]
  - Diarrhoea [Recovered/Resolved]
  - Stress [Recovering/Resolving]
  - Human chorionic gonadotropin positive [Unknown]
  - Dizziness [Unknown]
  - Goitre [Unknown]
  - Menopausal symptoms [Unknown]
  - Mood swings [Unknown]
  - Depression [Unknown]
  - Vena cava filter insertion [Unknown]
